FAERS Safety Report 13035590 (Version 3)
Quarter: 2017Q1

REPORT INFORMATION
  Report Type: Report from Study
  Country: FR (occurrence: FR)
  Receive Date: 20161216
  Receipt Date: 20170215
  Transmission Date: 20170428
  Serious: Yes (Hospitalization)
  Sender: FDA-Public Use
  Company Number: FR-INCYTE CORPORATION-2016IN008037

PATIENT
  Sex: Male

DRUGS (4)
  1. JAKAVI [Suspect]
     Active Substance: RUXOLITINIB
     Dosage: 10 MG, QD
     Route: 065
     Dates: start: 20160503, end: 201606
  2. JAKAVI [Suspect]
     Active Substance: RUXOLITINIB
     Indication: MYELOFIBROSIS
     Dosage: 5 MG, BID
     Route: 065
     Dates: start: 20130529, end: 20140727
  3. JAKAVI [Suspect]
     Active Substance: RUXOLITINIB
     Dosage: 5 MG, QD
     Route: 065
     Dates: start: 20140728, end: 20140829
  4. JAKAVI [Suspect]
     Active Substance: RUXOLITINIB
     Dosage: 5 MG, QD
     Route: 065
     Dates: start: 20140902, end: 20151202

REACTIONS (1)
  - Staphylococcal sepsis [Not Recovered/Not Resolved]

NARRATIVE: CASE EVENT DATE: 20160706
